FAERS Safety Report 18501222 (Version 1)
Quarter: 2020Q4

REPORT INFORMATION
  Report Type: Spontaneous
  Country: US (occurrence: US)
  Receive Date: 20201113
  Receipt Date: 20201113
  Transmission Date: 20210114
  Serious: Yes (Hospitalization)
  Sender: FDA-Public Use
  Company Number: None

PATIENT
  Age: 8 Year
  Sex: Male

DRUGS (1)
  1. TOBRAMYCIN. [Suspect]
     Active Substance: TOBRAMYCIN
     Indication: ASTHMA
     Dosage: ?          OTHER FREQUENCY:EVERY 12 HOURS;?
     Route: 055

REACTIONS (2)
  - Productive cough [None]
  - Pneumonia [None]

NARRATIVE: CASE EVENT DATE: 20201112
